FAERS Safety Report 8422463-7 (Version None)
Quarter: 2012Q2

REPORT INFORMATION
  Report Type: 
  Country: None (occurrence: None)
  Receive Date: 20120608
  Receipt Date: 20120606
  Transmission Date: 20120825
  Serious: Yes (Other)
  Sender: FDA-Public Use
  Company Number: LU-PFIZER INC-2012135820

PATIENT

DRUGS (1)
  1. LYRICA [Suspect]
     Dosage: UNK

REACTIONS (6)
  - BLOOD CALCIUM ABNORMAL [None]
  - HYPERURICAEMIA [None]
  - BLOOD POTASSIUM ABNORMAL [None]
  - NEPHROPATHY TOXIC [None]
  - PROTEINURIA [None]
  - BLOOD PHOSPHORUS ABNORMAL [None]
